FAERS Safety Report 9975582 (Version 1)
Quarter: 2014Q1

REPORT INFORMATION
  Report Type: Report from Study
  Country: US (occurrence: US)
  Receive Date: 20140306
  Receipt Date: 20140306
  Transmission Date: 20141002
  Serious: No
  Sender: FDA-Public Use
  Company Number: US-ABBVIE-13P-163-1158622-00

PATIENT
  Age: 34 Year
  Sex: Female

DRUGS (15)
  1. HUMIRA [Suspect]
     Indication: RHEUMATOID ARTHRITIS
     Dates: start: 20130913
  2. TOPAMAX [Concomitant]
     Indication: MIGRAINE
     Dosage: 50 MG DAILY
  3. ZOMIG [Concomitant]
     Indication: MIGRAINE
  4. VOLTAREN [Concomitant]
     Indication: INFLAMMATION
  5. TRAMADOL [Concomitant]
     Indication: PAIN
  6. ZANTAC [Concomitant]
     Indication: GASTROOESOPHAGEAL REFLUX DISEASE
     Dosage: 300 MG DAILY
  7. METHOTREXATE [Concomitant]
     Indication: PRODUCT USED FOR UNKNOWN INDICATION
  8. FOLIC ACID [Concomitant]
     Indication: PRODUCT USED FOR UNKNOWN INDICATION
     Dosage: DAILY
  9. AMBIEN [Concomitant]
     Indication: INSOMNIA
     Dosage: 6.25 MG DAILY
  10. XANAX [Concomitant]
     Indication: ANXIETY
  11. ADVAIR [Concomitant]
     Indication: HYPERSENSITIVITY
     Dosage: 100/50 MG
  12. FLONASE [Concomitant]
     Indication: HYPERSENSITIVITY
     Dosage: PER NOSTRIL DAILY
     Route: 045
  13. VITAMINS [Concomitant]
     Indication: PRODUCT USED FOR UNKNOWN INDICATION
     Dosage: DAILY
  14. SUPPLEMENTS [Concomitant]
     Indication: PRODUCT USED FOR UNKNOWN INDICATION
     Dosage: DAILY
  15. ALLERGY SHOT [Concomitant]
     Indication: PRODUCT USED FOR UNKNOWN INDICATION
     Dosage: MONTHLY

REACTIONS (1)
  - Migraine [Recovered/Resolved]
